FAERS Safety Report 17446781 (Version 1)
Quarter: 2020Q1

REPORT INFORMATION
  Report Type: Report from Study
  Country: BR (occurrence: BR)
  Receive Date: 20200221
  Receipt Date: 20200221
  Transmission Date: 20200409
  Serious: Yes (Other)
  Sender: FDA-Public Use
  Company Number: BR-BIOGEN-2020BI00839575

PATIENT
  Age: 51 Year
  Sex: Female

DRUGS (4)
  1. LABIRIN [Concomitant]
     Active Substance: BETAHISTINE
     Indication: BACK PAIN
     Route: 065
  2. METICORTEN [Concomitant]
     Active Substance: PREDNISONE
     Indication: BACK PAIN
     Route: 065
  3. GABANEURIN [Concomitant]
     Active Substance: GABAPENTIN
     Indication: BACK PAIN
     Route: 065
  4. TECFIDERA [Suspect]
     Active Substance: DIMETHYL FUMARATE
     Indication: MULTIPLE SCLEROSIS
     Route: 048
     Dates: start: 20180404

REACTIONS (6)
  - Vitreous detachment [Unknown]
  - Eye haemorrhage [Unknown]
  - Visual impairment [Unknown]
  - Maculopathy [Not Recovered/Not Resolved]
  - Congenital eye disorder [Unknown]
  - Retinal disorder [Not Recovered/Not Resolved]

NARRATIVE: CASE EVENT DATE: 201902
